FAERS Safety Report 8098300 (Version 5)
Quarter: 2013Q4

REPORT INFORMATION
  Report Type: Spontaneous
  Country: US (occurrence: US)
  Receive Date: 20110819
  Receipt Date: 20131202
  Transmission Date: 20140711
  Serious: Yes (Hospitalization)
  Sender: FDA-Public Use
  Company Number: US-GLAXOSMITHKLINE-A0915678A

PATIENT
  Age: 53 Year
  Sex: Female
  Weight: 115.9 kg

DRUGS (7)
  1. AVANDIA [Suspect]
     Indication: DIABETES MELLITUS
     Route: 048
     Dates: start: 20090211, end: 201004
  2. LISINOPRIL [Concomitant]
  3. INSULIN [Concomitant]
  4. GLIPIZIDE [Concomitant]
  5. GLUCOPHAGE [Concomitant]
  6. NADOLOL [Concomitant]
  7. NEURONTIN [Concomitant]

REACTIONS (6)
  - Cardiac failure congestive [Unknown]
  - Renal failure acute [Unknown]
  - Renal failure acute [Unknown]
  - Hypoxia [Unknown]
  - Hypertension [Unknown]
  - Diastolic dysfunction [Unknown]
